FAERS Safety Report 16922830 (Version 2)
Quarter: 2019Q4

REPORT INFORMATION
  Report Type: Spontaneous
  Country: US (occurrence: US)
  Receive Date: 20191016
  Receipt Date: 20191119
  Transmission Date: 20200122
  Serious: Yes (Hospitalization)
  Sender: FDA-Public Use
  Company Number: US-GW PHARMA-201910USGW3707

PATIENT

DRUGS (40)
  1. ATROVENT [Concomitant]
     Active Substance: IPRATROPIUM BROMIDE
     Indication: DYSPNOEA
  2. PERIDEX [CHLORHEXIDINE GLUCONATE] [Concomitant]
     Indication: DENTAL DISORDER PROPHYLAXIS
     Dosage: UNK
     Route: 065
  3. ZANTAC [Concomitant]
     Active Substance: RANITIDINE HYDROCHLORIDE
     Indication: PRODUCT USED FOR UNKNOWN INDICATION
     Dosage: 105 MILLIGRAM, BID (TAKE 7 ML, DOSE 3-7 MLS PER MOTHERS DISCRETION)
     Route: 048
  4. ONFI [Concomitant]
     Active Substance: CLOBAZAM
     Indication: PRODUCT USED FOR UNKNOWN INDICATION
     Dosage: 8.5 MILLILITER, BID (FEEDING TUBE)
     Route: 048
  5. DESITIN [ZINC OXIDE] [Concomitant]
     Indication: PRODUCT USED FOR UNKNOWN INDICATION
     Dosage: APPLY 1 APPLICATION EXTERNALLY AS NEEDED
     Route: 061
  6. ALBUTEROL [SALBUTAMOL] [Concomitant]
     Active Substance: ALBUTEROL
     Indication: WHEEZING
     Dosage: 3 MILLILITER, Q4H (INHALE 3 ML BY NEBULIZATION EVERY 4 HOURS AS NEEDED)
  7. IMODIUM [Concomitant]
     Active Substance: LOPERAMIDE HYDROCHLORIDE
     Indication: PRODUCT USED FOR UNKNOWN INDICATION
     Dosage: 10 MILLILITER, QID (30 DAYS)
  8. ZYRTEC [Concomitant]
     Active Substance: CETIRIZINE HYDROCHLORIDE
     Indication: HYPERSENSITIVITY
     Dosage: 5-10 MG BY MOUTH ONCE DAILY AS NEEDEDUNK
     Route: 048
  9. CALCIUM CARBONATE. [Concomitant]
     Active Substance: CALCIUM CARBONATE
     Dosage: 2 MILLILITER, BID
     Route: 048
  10. VITAMIN D [COLECALCIFEROL] [Concomitant]
     Active Substance: CHOLECALCIFEROL
     Indication: PRODUCT USED FOR UNKNOWN INDICATION
     Dosage: 400 UNITS, BID
  11. CILOXAN [Concomitant]
     Active Substance: CIPROFLOXACIN HYDROCHLORIDE
     Indication: EAR HAEMORRHAGE
     Dosage: 2 DROPS INTO RIGHT EAR TWICE DAILY AS NEEDED
     Route: 001
  12. EPIDIOLEX [Suspect]
     Active Substance: CANNABIDIOL
     Indication: LENNOX-GASTAUT SYNDROME
     Dosage: 150 MILLIGRAM, BID
     Route: 048
     Dates: start: 20190905, end: 20191008
  13. FERROUS SULFATE. [Concomitant]
     Active Substance: FERROUS SULFATE
     Indication: PRODUCT USED FOR UNKNOWN INDICATION
     Dosage: 7.4 MILLILITER, BID
     Route: 048
  14. VIMPAT [Concomitant]
     Active Substance: LACOSAMIDE
     Indication: PRODUCT USED FOR UNKNOWN INDICATION
     Dosage: 20 MILLILITER, BID (EVERY 12 HOURS)
  15. ROBITUSSIN (GUAIFENESIN) [Concomitant]
     Active Substance: GUAIFENESIN
     Indication: COUGH
     Dosage: 10 MILLILITER, Q4H (EVERY 4 HOURS AS NEEDED)
     Route: 048
  16. ATROVENT [Concomitant]
     Active Substance: IPRATROPIUM BROMIDE
     Indication: WHEEZING
     Dosage: 2.5 MILLILITER, Q6H (EVERY 6 HOURS AS NEEDED)
  17. FLEET ENEMA [Concomitant]
     Active Substance: SODIUM PHOSPHATE, DIBASIC\SODIUM PHOSPHATE, MONOBASIC
     Indication: CONSTIPATION
     Dosage: UNK, ONCE A DAY AS NEEDED
     Route: 054
     Dates: start: 2019
  18. ATIVAN [Concomitant]
     Active Substance: LORAZEPAM
     Indication: SEIZURE
     Dosage: (0.5-1 ML IN FEEDING TUBE AS NEEDED. CAN BE GIVEN EVERY 8 HOURS. WAIT 12 HOURS TO GIVE DIASTAT IF LO
     Route: 048
  19. VITAMIN B-6 [Concomitant]
     Active Substance: PYRIDOXINE
     Indication: PRODUCT USED FOR UNKNOWN INDICATION
     Dosage: 25 MILLIGRAM, BID (TAKES 2 TABS)
     Route: 048
  20. TYLENOL [Concomitant]
     Active Substance: ACETAMINOPHEN
     Indication: PAIN
     Dosage: 688 MILLIGRAM, Q4H
  21. CORTIZONE 10 [Concomitant]
     Active Substance: HYDROCORTISONE
     Indication: PRODUCT USED FOR UNKNOWN INDICATION
     Dosage: APPLY 1 APPLICATION EXTERNALLY TWICE DAILY FOR ONE WEEK THEN AS NEEDED
     Route: 061
  22. HEPARIN FLUSH [Concomitant]
     Active Substance: HEPARIN SODIUM
     Indication: PRODUCT USED FOR UNKNOWN INDICATION
     Dosage: 1-2 ML INTO VEIN ONCE DAILY.
     Route: 042
  23. LOTRIMIN AF [CLOTRIMAZOLE] [Concomitant]
     Indication: SKIN LESION
     Dosage: 1 APPLICATION EXTERNALLY TWICE DAILY
     Route: 061
  24. BANZEL [Concomitant]
     Active Substance: RUFINAMIDE
     Indication: PRODUCT USED FOR UNKNOWN INDICATION
     Dosage: 32 MILLILITER, BID
  25. PULMICORT TURBUHALER [Concomitant]
     Active Substance: BUDESONIDE
     Indication: PRODUCT USED FOR UNKNOWN INDICATION
     Dosage: 2 MILLILITER, BID
  26. ZOFRAN [Concomitant]
     Active Substance: ONDANSETRON HYDROCHLORIDE
     Indication: NAUSEA
     Dosage: 4 MILLIGRAM, Q8H (TAKE 1 TABLET AS NEEDED)
  27. ZOFRAN [Concomitant]
     Active Substance: ONDANSETRON HYDROCHLORIDE
     Indication: VOMITING
  28. CALMOSEPTINE [MENTHOL;ZINC OXIDE] [Concomitant]
     Indication: PRURITUS
     Dosage: APPLY 1 APPLICATION AS NEEDED
     Route: 061
  29. DECADRON [DEXAMETHASONE SODIUM PHOSPHATE] [Concomitant]
     Indication: EAR HAEMORRHAGE
     Dosage: 2 DROPS INTO RIGHT EYE TWICE DAILY AS NEEDED
     Route: 061
  30. DEPAKENE [VALPROATE SODIUM] [Concomitant]
     Active Substance: VALPROATE SODIUM
     Indication: PRODUCT USED FOR UNKNOWN INDICATION
     Dosage: 11 MILLILITER, QID
     Route: 048
  31. LIPOSYN LL [Concomitant]
     Indication: PRODUCT USED FOR UNKNOWN INDICATION
     Dosage: INJECT 250 ML ON MONDAY, WEDNESDAY AND FRIDAY
     Route: 042
  32. INTRALIPID [Concomitant]
     Active Substance: EGG PHOSPHOLIPIDS\GLYCERIN\SOYBEAN OIL
     Indication: PRODUCT USED FOR UNKNOWN INDICATION
     Dosage: INJECT 250 ML ON MONDAY, WEDNESDAY AND FRIDAY
     Route: 042
  33. SYNTHROID [Concomitant]
     Active Substance: LEVOTHYROXINE SODIUM
     Indication: PRODUCT USED FOR UNKNOWN INDICATION
     Dosage: 1 TAB, QD
  34. TYLENOL [Concomitant]
     Active Substance: ACETAMINOPHEN
     Indication: PYREXIA
  35. BAZA [Concomitant]
     Indication: PRODUCT USED FOR UNKNOWN INDICATION
     Dosage: APPLY 1 APPLICATION AS NEEDED WITH DIAPER CHANGE
     Route: 061
  36. MYCOSTATIN [Concomitant]
     Active Substance: NYSTATIN
     Indication: DERMATITIS DIAPER
     Dosage: APPLY 1 APPLICATION THREE TIMES A DAY AS NEEDED.
     Route: 061
  37. ALBUTEROL HFA [Concomitant]
     Active Substance: ALBUTEROL SULFATE
     Indication: WHEEZING
     Dosage: INHALES 2-4 PUFFS BY MOUTH EVERY 4 HOURS AS NEEDED
  38. NIZORAL [Concomitant]
     Active Substance: KETOCONAZOLE
     Indication: PRODUCT USED FOR UNKNOWN INDICATION
     Dosage: APPLY 1 APPLICATION EXTERNALLY TWICE DAILY
     Route: 061
  39. SIMETHICONE (DIMETHICONE) [Concomitant]
     Active Substance: DIMETHICONE
     Indication: FLATULENCE
     Dosage: 80 MILLIGRAM, QID (AS NEEDED)
     Route: 048
  40. OXYGEN. [Concomitant]
     Active Substance: OXYGEN
     Indication: PRODUCT USED FOR UNKNOWN INDICATION
     Dosage: UNK 3 LITERS
     Route: 065

REACTIONS (2)
  - Pneumonia [Unknown]
  - Seizure [Unknown]

NARRATIVE: CASE EVENT DATE: 20190922
